FAERS Safety Report 19048073 (Version 2)
Quarter: 2021Q2

REPORT INFORMATION
  Report Type: Spontaneous
  Country: US (occurrence: US)
  Receive Date: 20210323
  Receipt Date: 20210407
  Transmission Date: 20210717
  Serious: Yes (Other)
  Sender: FDA-Public Use
  Company Number: US-ALLERGAN-2111537US

PATIENT
  Sex: Female

DRUGS (2)
  1. KYBELLA [Suspect]
     Active Substance: DEOXYCHOLIC ACID
     Dosage: 4 ML, SINGLE
     Route: 058
     Dates: start: 20210205, end: 20210205
  2. KYBELLA [Suspect]
     Active Substance: DEOXYCHOLIC ACID
     Indication: FAT TISSUE INCREASED
     Dosage: 4 ML, SINGLE
     Route: 058
     Dates: start: 20210305, end: 20210305

REACTIONS (8)
  - Injection site scab [Recovering/Resolving]
  - Injection site discolouration [Not Recovered/Not Resolved]
  - Injection site ischaemia [Not Recovered/Not Resolved]
  - Injection site pain [Recovering/Resolving]
  - Injection site scar [Not Recovered/Not Resolved]
  - Injection site bruising [Recovering/Resolving]
  - Injection site necrosis [Recovering/Resolving]
  - Vascular injury [Not Recovered/Not Resolved]

NARRATIVE: CASE EVENT DATE: 20210205
